FAERS Safety Report 12010276 (Version 1)
Quarter: 2016Q1

REPORT INFORMATION
  Report Type: Spontaneous
  Country: US (occurrence: US)
  Receive Date: 20160205
  Receipt Date: 20160205
  Transmission Date: 20160526
  Serious: No
  Sender: FDA-Public Use
  Company Number: US-PFIZER INC-2016009953

PATIENT
  Age: 61 Year
  Sex: Male
  Weight: 83.91 kg

DRUGS (2)
  1. NAVANE [Suspect]
     Active Substance: THIOTHIXENE
     Indication: MUSCLE RELAXANT THERAPY
     Dosage: UNK
     Dates: start: 1988, end: 1999
  2. TRILAFON [Concomitant]
     Active Substance: PERPHENAZINE
     Indication: MUSCLE RELAXANT THERAPY
     Dosage: UNK
     Dates: start: 1976, end: 1998

REACTIONS (4)
  - Product use issue [Unknown]
  - Decreased appetite [Unknown]
  - Drug ineffective [Unknown]
  - Insomnia [Unknown]
